FAERS Safety Report 9398220 (Version 1)
Quarter: 2013Q3

REPORT INFORMATION
  Report Type: Report from Study
  Country: CA (occurrence: CA)
  Receive Date: 20130712
  Receipt Date: 20130712
  Transmission Date: 20140515
  Serious: Yes (Hospitalization)
  Sender: FDA-Public Use
  Company Number: CA-JNJFOC-20130704021

PATIENT
  Age: 33 Year
  Sex: Male
  Weight: 53 kg

DRUGS (1)
  1. REMICADE [Suspect]
     Indication: CROHN^S DISEASE
     Dosage: INDUCTION DOSES
     Route: 042
     Dates: start: 20130506, end: 20130620

REACTIONS (1)
  - Obstruction [Unknown]
